FAERS Safety Report 4940452-1 (Version None)
Quarter: 2006Q1

REPORT INFORMATION
  Report Type: 
  Country: None (occurrence: None)
  Receive Date: 20060131
  Receipt Date: 20051028
  Transmission Date: 20060701
  Serious: No
  Sender: FDA-Public Use
  Company Number: 200519261US

PATIENT
  Sex: Female

DRUGS (7)
  1. KETEK [Suspect]
     Indication: SINUSITIS
     Dosage: QD PO
     Route: 048
     Dates: start: 20051025, end: 20051027
  2. ALLEGRA [Suspect]
     Indication: PRURITUS
     Dosage: 180 MG PO
     Route: 048
     Dates: start: 20051025
  3. KETOROLAC TROMETHAMINE (TORADOL) [Concomitant]
  4. CALCIUM GLUCONATE [Concomitant]
  5. VITAMIN E [Concomitant]
  6. DIPHENHYDRAMINE HYDROCHLORIDE (BENADRYL /OLD FORM/) [Concomitant]
  7. LASIX [Concomitant]

REACTIONS (3)
  - DRUG INEFFECTIVE [None]
  - RASH GENERALISED [None]
  - VOMITING [None]
